FAERS Safety Report 9233802 (Version 1)
Quarter: 2013Q2

REPORT INFORMATION
  Report Type: Spontaneous
  Country: DE (occurrence: DE)
  Receive Date: 20130416
  Receipt Date: 20130416
  Transmission Date: 20140414
  Serious: Yes (Hospitalization)
  Sender: FDA-Public Use
  Company Number: DE-TEVA-396277GER

PATIENT
  Age: 73 Year
  Sex: Male

DRUGS (2)
  1. FLUOROURACIL [Suspect]
     Indication: OESOPHAGEAL CARCINOMA
     Dosage: 1000MG/QM/DAY ON DAYS 1-4
     Route: 042
  2. CISPLATIN [Concomitant]
     Indication: OESOPHAGEAL CARCINOMA
     Dosage: 60 MILLIGRAM DAILY; 60MG/QM ON DAY 1
     Route: 042

REACTIONS (3)
  - Myocardial ischaemia [Recovering/Resolving]
  - Atrial fibrillation [Recovering/Resolving]
  - Angina pectoris [Recovered/Resolved]
